FAERS Safety Report 20674436 (Version 1)
Quarter: 2022Q2

REPORT INFORMATION
  Report Type: Report from Study
  Country: DE (occurrence: DE)
  Receive Date: 20220405
  Receipt Date: 20220405
  Transmission Date: 20220721
  Serious: Yes (Other)
  Sender: FDA-Public Use
  Company Number: DE-NOVARTISPH-NVSC2022DE075292

PATIENT
  Sex: Female

DRUGS (1)
  1. MAYZENT [Suspect]
     Active Substance: SIPONIMOD
     Indication: Secondary progressive multiple sclerosis
     Dosage: 2 MG, QD
     Route: 048
     Dates: start: 20200623

REACTIONS (1)
  - Leukopenia [Not Recovered/Not Resolved]

NARRATIVE: CASE EVENT DATE: 20220202
